FAERS Safety Report 7206297-7 (Version None)
Quarter: 2011Q1

REPORT INFORMATION
  Report Type: 
  Country: None (occurrence: None)
  Receive Date: 20110103
  Receipt Date: 20101222
  Transmission Date: 20110831
  Serious: Yes (Hospitalization)
  Sender: FDA-Public Use
  Company Number: PHHY2010BE87333

PATIENT
  Age: 70 Year
  Sex: Male

DRUGS (1)
  1. EXELON [Suspect]
     Route: 062

REACTIONS (3)
  - PSYCHOTIC DISORDER [None]
  - DELIRIUM [None]
  - DEMENTIA [None]
